FAERS Safety Report 7023894-2 (Version None)
Quarter: 2010Q4

REPORT INFORMATION
  Report Type: 
  Country: None (occurrence: None)
  Receive Date: 20101001
  Receipt Date: 20100920
  Transmission Date: 20110411
  Serious: Yes (Hospitalization)
  Sender: FDA-Public Use
  Company Number: SG-ELI_LILLY_AND_COMPANY-SG201009005799

PATIENT
  Age: 75 Year
  Sex: Female

DRUGS (2)
  1. GEMCITABINE HCL [Suspect]
     Indication: PANCREATIC CARCINOMA
     Dosage: 1043 MG, WEEKLY (1/W)
     Route: 042
     Dates: start: 20080918, end: 20081226
  2. PLACEBO [Suspect]
     Indication: PANCREATIC CARCINOMA
     Dosage: 5 MG, 2/D
     Route: 048
     Dates: start: 20080918, end: 20090108

REACTIONS (1)
  - DEEP VEIN THROMBOSIS [None]
